FAERS Safety Report 11925641 (Version 4)
Quarter: 2016Q1

REPORT INFORMATION
  Report Type: Spontaneous
  Country: US (occurrence: US)
  Receive Date: 20160118
  Receipt Date: 20160216
  Transmission Date: 20160526
  Serious: Yes (Hospitalization)
  Sender: FDA-Public Use
  Company Number: US-ACTELION-A-NJ2015-128503

PATIENT
  Age: 57 Year
  Sex: Female

DRUGS (1)
  1. OPSUMIT [Suspect]
     Active Substance: MACITENTAN
     Indication: PULMONARY ARTERIAL HYPERTENSION
     Dosage: 10 MG, QD
     Route: 048
     Dates: start: 20151103, end: 20151201

REACTIONS (13)
  - Anaemia [Unknown]
  - Oedema peripheral [Recovered/Resolved]
  - Swelling [Unknown]
  - Productive cough [Recovered/Resolved]
  - Acute kidney injury [Recovered/Resolved]
  - Chills [Recovered/Resolved]
  - Chronic obstructive pulmonary disease [Recovered/Resolved]
  - Urinary tract infection [Recovering/Resolving]
  - Sluggishness [Unknown]
  - Acute respiratory failure [Recovered/Resolved]
  - Dyspnoea [Recovered/Resolved]
  - Renal failure [Recovered/Resolved]
  - Pyrexia [Recovered/Resolved]

NARRATIVE: CASE EVENT DATE: 201511
